FAERS Safety Report 8077124-3 (Version None)
Quarter: 2012Q1

REPORT INFORMATION
  Report Type: 
  Country: None (occurrence: None)
  Receive Date: 20120127
  Receipt Date: 20120124
  Transmission Date: 20120608
  Serious: Yes (Death, Life-Threatening)
  Sender: FDA-Public Use
  Company Number: PHHY2011FR111031

PATIENT
  Sex: Female

DRUGS (1)
  1. EXELON [Suspect]
     Dosage: UNK UKN, UNK
     Route: 062
     Dates: start: 20111129, end: 20111206

REACTIONS (12)
  - ENCEPHALOPATHY [None]
  - CSF PROTEIN INCREASED [None]
  - HYPOTHERMIA [None]
  - SOMNOLENCE [None]
  - HYPOTHYROIDISM [None]
  - DEATH [None]
  - COMA [None]
  - BLOOD CREATININE INCREASED [None]
  - ELECTROCARDIOGRAM QT PROLONGED [None]
  - CONFUSIONAL STATE [None]
  - AGITATION [None]
  - ELECTROENCEPHALOGRAM ABNORMAL [None]
